FAERS Safety Report 19294917 (Version 1)
Quarter: 2021Q2

REPORT INFORMATION
  Report Type: Spontaneous
  Country: FR (occurrence: FR)
  Receive Date: 20210524
  Receipt Date: 20210524
  Transmission Date: 20210717
  Serious: Yes (Other)
  Sender: FDA-Public Use
  Company Number: FR-TEVA-2021-FR-1913721

PATIENT
  Age: 29 Year
  Sex: Male

DRUGS (4)
  1. DIAZEPAM. [Suspect]
     Active Substance: DIAZEPAM
     Dosage: UNKNOWN
     Dates: start: 202102
  2. METHADONE [Suspect]
     Active Substance: METHADONE HYDROCHLORIDE
     Indication: PRODUCT SUBSTITUTION
     Dosage: UNKNOWN , THERAPY START DATE : ASKU
  3. LOXAPAC [Suspect]
     Active Substance: LOXAPINE
     Dosage: 5 DF
     Dates: start: 20210202, end: 20210202
  4. SERESTA [Suspect]
     Active Substance: OXAZEPAM
     Dosage: 17 DF
     Dates: start: 20210202, end: 20210202

REACTIONS (2)
  - Oxygen saturation decreased [Recovered/Resolved]
  - Somnolence [Recovered/Resolved]

NARRATIVE: CASE EVENT DATE: 20210202
